FAERS Safety Report 25008928 (Version 1)
Quarter: 2025Q1

REPORT INFORMATION
  Report Type: Spontaneous
  Country: AU (occurrence: AU)
  Receive Date: 20250225
  Receipt Date: 20250225
  Transmission Date: 20250409
  Serious: Yes (Other)
  Sender: MYLAN
  Company Number: AU-MYLANLABS-2025M1016130

PATIENT
  Sex: Male

DRUGS (8)
  1. CLOZARIL [Suspect]
     Active Substance: CLOZAPINE
     Indication: Schizophrenia
  2. CLOZARIL [Suspect]
     Active Substance: CLOZAPINE
     Route: 048
  3. CLOZARIL [Suspect]
     Active Substance: CLOZAPINE
     Route: 048
  4. CLOZARIL [Suspect]
     Active Substance: CLOZAPINE
  5. LITHIUM [Concomitant]
     Active Substance: LITHIUM
  6. LITHIUM [Concomitant]
     Active Substance: LITHIUM
     Route: 065
  7. LITHIUM [Concomitant]
     Active Substance: LITHIUM
     Route: 065
  8. LITHIUM [Concomitant]
     Active Substance: LITHIUM

REACTIONS (2)
  - Pneumonia [Recovering/Resolving]
  - Cough [Recovering/Resolving]
